FAERS Safety Report 15509133 (Version 1)
Quarter: 2018Q4

REPORT INFORMATION
  Report Type: Spontaneous
  Country: US (occurrence: US)
  Receive Date: 20181016
  Receipt Date: 20181016
  Transmission Date: 20190205
  Serious: Yes (Other)
  Sender: FDA-Public Use
  Company Number: None

PATIENT
  Age: 51 Year
  Sex: Female
  Weight: 97.65 kg

DRUGS (8)
  1. ZOLOFT [Concomitant]
     Active Substance: SERTRALINE HYDROCHLORIDE
  2. VITAMIN D [Concomitant]
     Active Substance: CHOLECALCIFEROL
  3. XGEVA [Concomitant]
     Active Substance: DENOSUMAB
  4. IBRANCE [Suspect]
     Active Substance: PALBOCICLIB
     Indication: BREAST CANCER
     Route: 048
     Dates: start: 20180830
  5. MULTIVITAMIN [Concomitant]
     Active Substance: VITAMINS
  6. LETROZOLE. [Concomitant]
     Active Substance: LETROZOLE
  7. ASPIRIN. [Concomitant]
     Active Substance: ASPIRIN
  8. OXYCODONE [Concomitant]
     Active Substance: OXYCODONE

REACTIONS (1)
  - Pain [None]
